FAERS Safety Report 4690040-X (Version None)
Quarter: 2005Q2

REPORT INFORMATION
  Report Type: 
  Country: None (occurrence: None)
  Receive Date: 20050614
  Receipt Date: 20050530
  Transmission Date: 20051028
  Serious: Yes (Life-Threatening, Other)
  Sender: FDA-Public Use
  Company Number: 2005082464

PATIENT
  Age: 44 Year

DRUGS (1)
  1. VIAGRA [Suspect]
     Indication: ILL-DEFINED DISORDER

REACTIONS (3)
  - BLINDNESS TRANSIENT [None]
  - INTENTIONAL MISUSE [None]
  - SUICIDE ATTEMPT [None]
